FAERS Safety Report 9657855 (Version 2)
Quarter: 2014Q1

REPORT INFORMATION
  Report Type: Spontaneous
  Country: GB (occurrence: None)
  Receive Date: 20131029
  Receipt Date: 20140228
  Transmission Date: 20141002
  Serious: Yes (Disabling)
  Sender: FDA-Public Use
  Company Number: AUR-APL-2013-08683

PATIENT
  Age: 53 Year
  Sex: 0
  Weight: 95 kg

DRUGS (2)
  1. NAPROXEN (NAPROXEN) [Suspect]
     Indication: PRODUCT USED FOR UNKNOWN INDICATION
     Dates: start: 20130829
  2. ZYBAN (BUPROPION HYDROCHLORIDE) [Suspect]
     Indication: SMOKING CESSATION THERAPY
     Route: 048
     Dates: start: 20130912, end: 20130929

REACTIONS (6)
  - Dizziness [None]
  - Paraesthesia [None]
  - Loss of consciousness [None]
  - Nausea [None]
  - Diarrhoea [None]
  - Fall [None]
